FAERS Safety Report 4776330-0 (Version None)
Quarter: 2005Q3

REPORT INFORMATION
  Report Type: 
  Country: None (occurrence: None)
  Receive Date: 20050921
  Receipt Date: 20050905
  Transmission Date: 20060218
  Serious: Yes (Other)
  Sender: FDA-Public Use
  Company Number: 2005P1000394

PATIENT
  Age: 70 Year
  Sex: Female

DRUGS (4)
  1. RETEVASE [Suspect]
     Indication: ACUTE MYOCARDIAL INFARCTION
     Dosage: 5 IU; IV
     Route: 042
     Dates: start: 20050729
  2. ABCIXIMAB (ABCIXIMAB) [Suspect]
     Indication: ACUTE MYOCARDIAL INFARCTION
     Dosage: 7.5 ML; IX; IV
     Route: 042
     Dates: start: 20050729
  3. HEPARIN [Concomitant]
  4. ASPIRIN [Concomitant]

REACTIONS (2)
  - ELECTROCARDIOGRAM ST-T CHANGE [None]
  - ISCHAEMIA [None]
